FAERS Safety Report 11149625 (Version 1)
Quarter: 2015Q2

REPORT INFORMATION
  Report Type: Spontaneous
  Country: US (occurrence: US)
  Receive Date: 20150529
  Receipt Date: 20150529
  Transmission Date: 20150821
  Serious: No
  Sender: FDA-Public Use
  Company Number: US-CELGENEUS-USA-2015042328

PATIENT
  Age: 65 Year
  Sex: Male
  Weight: 111.23 kg

DRUGS (1)
  1. OTEZLA [Suspect]
     Active Substance: APREMILAST
     Indication: PSORIATIC ARTHROPATHY
     Route: 048
     Dates: start: 20150324

REACTIONS (4)
  - Feeling abnormal [Unknown]
  - Depression [Unknown]
  - Fatigue [Unknown]
  - Apathy [Unknown]

NARRATIVE: CASE EVENT DATE: 20150324
